FAERS Safety Report 19801295 (Version 3)
Quarter: 2021Q4

REPORT INFORMATION
  Report Type: Spontaneous
  Country: MX (occurrence: MX)
  Receive Date: 20210907
  Receipt Date: 20211004
  Transmission Date: 20220304
  Serious: Yes (Hospitalization)
  Sender: FDA-Public Use
  Company Number: MX-ORGANON-O2109MEX000461

PATIENT
  Age: 37 Year
  Sex: Female

DRUGS (1)
  1. BETAMETHASONE ACETATE\BETAMETHASONE SODIUM PHOSPHATE [Suspect]
     Active Substance: BETAMETHASONE ACETATE\BETAMETHASONE SODIUM PHOSPHATE
     Indication: Maternal therapy to enhance foetal lung maturity
     Dosage: 2.71 MG / 3 MG, Q12H

REACTIONS (3)
  - Vaginal haemorrhage [Recovered/Resolved]
  - Adverse event [Recovered/Resolved]
  - Maternal exposure timing unspecified [Recovered/Resolved]
